FAERS Safety Report 9949465 (Version 2)
Quarter: 2014Q1

REPORT INFORMATION
  Report Type: Spontaneous
  Country: US (occurrence: US)
  Receive Date: 20140304
  Receipt Date: 20140304
  Transmission Date: 20141002
  Serious: No
  Sender: FDA-Public Use
  Company Number: US-PFIZER INC-2013213560

PATIENT
  Age: 49 Year
  Sex: Male
  Weight: 113.38 kg

DRUGS (8)
  1. LYRICA [Suspect]
     Indication: DIABETIC NEUROPATHY
     Dosage: 100 MG, 3X/DAY
     Route: 048
     Dates: start: 2012
  2. METFORMIN [Concomitant]
     Indication: DIABETES MELLITUS
     Dosage: 1000 MG, UNK
  3. GLIMEPIRIDE [Concomitant]
     Indication: DIABETES MELLITUS
     Dosage: 1 MG, UNK
  4. SIMVASTATIN [Concomitant]
     Dosage: 40 MG, UNK
  5. AMITRIPTYLINE [Concomitant]
     Dosage: 10 MG, UNK
  6. NEURONTIN [Concomitant]
     Dosage: 10 MG, UNK
  7. CYMBALTA [Concomitant]
     Dosage: 100 MG, UNK
  8. FENOFIBRATE [Concomitant]
     Dosage: 100 MG, UNK

REACTIONS (1)
  - Pain [Unknown]
